FAERS Safety Report 21895990 (Version 10)
Quarter: 2025Q4

REPORT INFORMATION
  Report Type: Report from Study
  Country: US (occurrence: US)
  Receive Date: 20230123
  Receipt Date: 20251209
  Transmission Date: 20260118
  Serious: Yes (Other)
  Sender: TAKEDA
  Company Number: US-TAKEDA-2023TUS006958

PATIENT
  Age: 54 Year
  Sex: Male

DRUGS (3)
  1. ADVATE [Suspect]
     Active Substance: ANTIHEMOPHILIC FACTOR, HUMAN RECOMBINANT
     Indication: Product used for unknown indication
     Dosage: 4500 INTERNATIONAL UNIT
  2. ADVATE [Suspect]
     Active Substance: ANTIHEMOPHILIC FACTOR, HUMAN RECOMBINANT
     Dosage: 5000 INTERNATIONAL UNIT
  3. ADVATE [Suspect]
     Active Substance: ANTIHEMOPHILIC FACTOR, HUMAN RECOMBINANT
     Dosage: 5000 INTERNATIONAL UNIT

REACTIONS (13)
  - Contusion [Unknown]
  - Device loosening [Unknown]
  - Blood urine present [Not Recovered/Not Resolved]
  - Periprosthetic fracture [Unknown]
  - Haemorrhage [Unknown]
  - Chest injury [Unknown]
  - Disability [Unknown]
  - Joint injury [Unknown]
  - Fall [Unknown]
  - Bladder neoplasm [Unknown]
  - Musculoskeletal chest pain [Unknown]
  - Product dose omission in error [Unknown]
  - Limb injury [Unknown]

NARRATIVE: CASE EVENT DATE: 20230111
